FAERS Safety Report 10705413 (Version 1)
Quarter: 2015Q1

REPORT INFORMATION
  Report Type: Spontaneous
  Country: US (occurrence: US)
  Receive Date: 20150112
  Receipt Date: 20150112
  Transmission Date: 20150721
  Serious: No
  Sender: FDA-Public Use
  Company Number: US-GLAXOSMITHKLINE-A1060273A

PATIENT

DRUGS (4)
  1. CONCERTA [Concomitant]
     Active Substance: METHYLPHENIDATE HYDROCHLORIDE
  2. PREDNISONE. [Concomitant]
     Active Substance: PREDNISONE
  3. GUANFACINE. [Concomitant]
     Active Substance: GUANFACINE
  4. PROMACTA [Suspect]
     Active Substance: ELTROMBOPAG OLAMINE
     Indication: IMMUNE THROMBOCYTOPENIC PURPURA
     Route: 048
     Dates: start: 201307

REACTIONS (5)
  - Ageusia [Unknown]
  - Peripheral swelling [Recovered/Resolved]
  - Tongue discolouration [Not Recovered/Not Resolved]
  - Tongue ulceration [Unknown]
  - Weight decreased [Unknown]
